FAERS Safety Report 20694168 (Version 1)
Quarter: 2022Q2

REPORT INFORMATION
  Report Type: Spontaneous
  Country: US (occurrence: US)
  Receive Date: 20220411
  Receipt Date: 20220411
  Transmission Date: 20220720
  Serious: Yes (Hospitalization)
  Sender: FDA-Public Use
  Company Number: US-SA-2022SA119388

PATIENT
  Age: 74 Year
  Sex: Female
  Weight: 50.3 kg

DRUGS (27)
  1. OXALIPLATIN [Suspect]
     Active Substance: OXALIPLATIN
     Indication: Metastatic neoplasm
     Dosage: 85 MG/M2, QOW
     Route: 042
     Dates: start: 20211221, end: 20220223
  2. BUDIGALIMAB [Suspect]
     Active Substance: BUDIGALIMAB
     Dosage: 500 MG, Q4W
     Route: 042
     Dates: start: 20211223, end: 20220225
  3. LEUCOVORIN [Suspect]
     Active Substance: LEUCOVORIN
     Dosage: 684 MG, QOW
     Route: 042
     Dates: start: 20211221, end: 20220209
  4. LEUCOVORIN [Suspect]
     Active Substance: LEUCOVORIN
     Dosage: 636 MG, QOW
     Dates: start: 20220223, end: 20220223
  5. IRINOTECAN [Suspect]
     Active Substance: IRINOTECAN
     Dosage: 256.5 MG, QOW
     Route: 042
  6. IRINOTECAN [Suspect]
     Active Substance: IRINOTECAN
     Dosage: 190.8 MG, QOW
  7. FLUOROURACIL [Suspect]
     Active Substance: FLUOROURACIL
     Dosage: 4104 MG, QOW
     Route: 042
     Dates: start: 20211221, end: 20220209
  8. FLUOROURACIL [Suspect]
     Active Substance: FLUOROURACIL
     Dosage: 3816 MG, QOW
     Dates: start: 20220223, end: 20220223
  9. VITAMIN D NOS [Concomitant]
     Active Substance: VITAMIN D NOS
     Indication: Vitamin D deficiency
     Route: 048
  10. DIPHENHYDRAMINE [Concomitant]
     Active Substance: DIPHENHYDRAMINE
     Indication: Hypersensitivity
     Dosage: 50 MG
     Dates: start: 20220104
  11. DIPHENHYDRAMINE [Concomitant]
     Active Substance: DIPHENHYDRAMINE
     Indication: Pruritus
  12. PREDNISONE [Concomitant]
     Active Substance: PREDNISONE
     Dosage: 50 MG
     Route: 048
     Dates: start: 20211216
  13. HYDROCORTISONE [Concomitant]
     Active Substance: HYDROCORTISONE
     Indication: Rectal haemorrhage
     Dosage: UNK
     Dates: start: 20180725
  14. LIDOCAINE [Concomitant]
     Active Substance: LIDOCAINE
     Indication: Haemorrhoids
     Dosage: UNK
     Route: 061
     Dates: start: 20170101
  15. ASPIRIN [Concomitant]
     Active Substance: ASPIRIN
     Indication: Coronary artery disease
     Dosage: 81 MG, QD
     Route: 048
     Dates: start: 20161201
  16. CAMPHOR OIL [Concomitant]
     Active Substance: CAMPHOR OIL
     Indication: Herpes virus infection
     Dosage: UNK
     Dates: start: 20211226
  17. CAMPHOR OIL [Concomitant]
     Active Substance: CAMPHOR OIL
     Indication: Lip dry
  18. FLUCONAZOLE [Concomitant]
     Active Substance: FLUCONAZOLE
     Indication: Vaginal infection
     Dosage: 150 MG, 1X
     Dates: start: 20220207
  19. PETROLATUM [Concomitant]
     Active Substance: PETROLATUM
     Indication: Dry skin
     Dosage: UNK
     Route: 061
     Dates: start: 20220207
  20. LACTATED RINGERS SOLUTION [Concomitant]
     Active Substance: CALCIUM CHLORIDE\POTASSIUM CHLORIDE\SODIUM CHLORIDE\SODIUM LACTATE
     Indication: Hypotension
     Dosage: 1 L, 1X
     Route: 042
     Dates: start: 20220128
  21. ONDANSETRON [Concomitant]
     Active Substance: ONDANSETRON
     Indication: Vomiting
     Dosage: 8 MG
     Route: 048
     Dates: start: 20211213
  22. LANOLIN;MINERAL OIL;PETROLATUM [Concomitant]
     Indication: Decubitus ulcer
     Dosage: UNK
     Route: 061
     Dates: start: 20220115
  23. VITAMIN B12 [Concomitant]
     Active Substance: CYANOCOBALAMIN
     Indication: Nutritional supplementation
     Dosage: 2000 IU, QD
     Route: 048
     Dates: start: 20150101
  24. ZINC [Concomitant]
     Active Substance: ZINC
     Indication: Nutritional supplementation
     Dosage: 50 MG, QD
     Route: 048
     Dates: start: 20150101
  25. ASCORBIC ACID [Concomitant]
     Active Substance: ASCORBIC ACID
     Indication: Nutritional supplementation
     Dosage: 1000 MG, QD
     Route: 048
     Dates: start: 20150101
  26. COD LIVER OIL [Concomitant]
     Active Substance: COD LIVER OIL
     Indication: Nutritional supplementation
     Dosage: 1000 MG, QD
     Route: 048
     Dates: start: 20150101
  27. MINERALS\VITAMINS [Concomitant]
     Active Substance: MINERALS\VITAMINS
     Indication: Nutritional supplementation
     Dosage: 1000 MG, QD
     Route: 048
     Dates: start: 20150101

REACTIONS (3)
  - Anaemia [Recovered/Resolved]
  - Vomiting [Recovered/Resolved]
  - Dehydration [Recovered/Resolved]

NARRATIVE: CASE EVENT DATE: 20220307
